FAERS Safety Report 5866110-7 (Version None)
Quarter: 2008Q3

REPORT INFORMATION
  Report Type: 
  Country: None (occurrence: None)
  Receive Date: 20080829
  Receipt Date: 20080820
  Transmission Date: 20090109
  Serious: Yes (Disabling)
  Sender: FDA-Public Use
  Company Number: AU-PFIZER INC-2008065147

PATIENT
  Age: 63 Year
  Sex: Male

DRUGS (1)
  1. DILANTIN [Suspect]
     Indication: EPILEPSY
     Route: 048

REACTIONS (1)
  - ERECTILE DYSFUNCTION [None]
